FAERS Safety Report 4922141-2 (Version None)
Quarter: 2006Q1

REPORT INFORMATION
  Report Type: 
  Country: None (occurrence: None)
  Receive Date: 20060224
  Receipt Date: 20060214
  Transmission Date: 20060701
  Serious: Yes (Hospitalization)
  Sender: FDA-Public Use
  Company Number: AU-JNJFOC-20060203925

PATIENT
  Sex: Female
  Weight: 60 kg

DRUGS (1)
  1. REMINYL [Suspect]
     Indication: PRESENILE DEMENTIA

REACTIONS (1)
  - PSYCHOTIC DISORDER [None]
